FAERS Safety Report 7600239-8 (Version None)
Quarter: 2011Q3

REPORT INFORMATION
  Report Type: 
  Country: None (occurrence: None)
  Receive Date: 20110711
  Receipt Date: 20110628
  Transmission Date: 20111222
  Serious: Yes (Other)
  Sender: FDA-Public Use
  Company Number: US-BAYER-2011-049786

PATIENT
  Sex: Female
  Weight: 72.562 kg

DRUGS (7)
  1. YASMIN [Suspect]
     Indication: ORAL CONTRACEPTION
     Dosage: UNK, QD
     Dates: start: 20031107, end: 20090101
  2. NORGESTIMATE AND ETHINYL ESTRADIOL [Concomitant]
     Indication: CONTRACEPTION
     Dosage: UNK
     Route: 048
     Dates: start: 20101011
  3. MAXALT [Concomitant]
     Dosage: UNK
     Dates: start: 20031201
  4. DROSPIRENONE AND ETHINYL ESTRADIOL [Suspect]
     Indication: ORAL CONTRACEPTION
  5. LORTAB [Concomitant]
     Indication: PAIN MANAGEMENT
     Dosage: UNK
     Route: 048
     Dates: start: 20031201
  6. XANAX [Concomitant]
     Indication: ANXIETY
     Dosage: UNK
     Route: 048
     Dates: start: 20060101
  7. SPIRIVA [Concomitant]
     Dosage: UNK
     Dates: start: 20090116

REACTIONS (3)
  - GALLBLADDER DISORDER [None]
  - ABDOMINAL PAIN [None]
  - CHOLELITHIASIS [None]
